FAERS Safety Report 14820226 (Version 1)
Quarter: 2018Q2

REPORT INFORMATION
  Report Type: Spontaneous
  Country: US (occurrence: US)
  Receive Date: 20180427
  Receipt Date: 20180427
  Transmission Date: 20180711
  Serious: Yes (Hospitalization)
  Sender: FDA-Public Use
  Company Number: US-ELI_LILLY_AND_COMPANY-US201804009515

PATIENT
  Sex: Female

DRUGS (3)
  1. CYMBALTA [Suspect]
     Active Substance: DULOXETINE HYDROCHLORIDE
     Dosage: 60 MG, DAILY
     Route: 065
  2. CYMBALTA [Suspect]
     Active Substance: DULOXETINE HYDROCHLORIDE
     Dosage: 90 MG, DAILY
     Route: 065
  3. CYMBALTA [Suspect]
     Active Substance: DULOXETINE HYDROCHLORIDE
     Indication: BACK PAIN
     Dosage: 30 MG, UNKNOWN
     Route: 065
     Dates: start: 2017

REACTIONS (10)
  - Weight decreased [Unknown]
  - Pain [Unknown]
  - Dry mouth [Unknown]
  - Back pain [Unknown]
  - Muscle spasms [Unknown]
  - Thirst [Unknown]
  - Emotional poverty [Unknown]
  - Anxiety [Unknown]
  - Asthenia [Unknown]
  - Loss of libido [Unknown]
